FAERS Safety Report 4721652-2 (Version None)
Quarter: 2005Q3

REPORT INFORMATION
  Report Type: 
  Country: None (occurrence: None)
  Receive Date: 20050721
  Receipt Date: 20050202
  Transmission Date: 20060218
  Serious: No
  Sender: FDA-Public Use
  Company Number: US-BRISTOL-MYERS SQUIBB COMPANY-12846754

PATIENT
  Age: 76 Year
  Sex: Male
  Weight: 74 kg

DRUGS (14)
  1. COUMADIN [Suspect]
     Indication: ATRIAL FIBRILLATION
     Dosage: DOSAGE: 1 TABLET EVERYDAY EXCEPT FRIDAY
     Route: 048
  2. ATIVAN [Concomitant]
  3. AVAPRO [Concomitant]
  4. BETAPACE [Concomitant]
  5. CALCIUM GLUCONATE [Concomitant]
     Route: 048
  6. CENTRUM [Concomitant]
  7. LANOXIN [Concomitant]
  8. LASIX [Concomitant]
  9. LOPID [Concomitant]
  10. NITROGLYCERIN TABS [Concomitant]
     Route: 048
  11. NORVASC [Concomitant]
  12. PRILOSEC [Concomitant]
  13. PRINIVIL [Concomitant]
  14. ZETIA [Concomitant]

REACTIONS (1)
  - HAEMOPTYSIS [None]
